FAERS Safety Report 18478152 (Version 3)
Quarter: 2022Q4

REPORT INFORMATION
  Report Type: Spontaneous
  Country: DE (occurrence: DE)
  Receive Date: 20201108
  Receipt Date: 20221202
  Transmission Date: 20230113
  Serious: Yes (Other)
  Sender: FDA-Public Use
  Company Number: DE-002147023-NVSC2020DE118619

PATIENT
  Sex: Female
  Weight: 167 kg

DRUGS (4)
  1. VALSARTAN [Suspect]
     Active Substance: VALSARTAN
     Indication: Hypertension
     Dosage: 160 MILLIGRAM, ONCE A DAY
     Route: 065
     Dates: start: 2014, end: 2018
  2. VALSARTAN [Suspect]
     Active Substance: VALSARTAN
     Indication: Hypertension
     Dosage: 160 MILLIGRAM, ONCE A DAY
     Route: 065
     Dates: start: 201207, end: 201312
  3. VALSARTAN [Suspect]
     Active Substance: VALSARTAN
     Indication: Hypertension
     Dosage: 160 MILLIGRAM, ONCE A DAY
     Route: 065
     Dates: start: 20120423, end: 201207
  4. VALSARTAN [Suspect]
     Active Substance: VALSARTAN
     Dosage: 160 MILLIGRAM, ONCE A DAY
     Route: 065
     Dates: start: 201312, end: 201511

REACTIONS (16)
  - Hypothyroidism [Unknown]
  - Fear of disease [Unknown]
  - Spinal pain [Unknown]
  - Diarrhoea [Not Recovered/Not Resolved]
  - Dizziness [Unknown]
  - Cardiovascular disorder [Unknown]
  - Anxiety [Unknown]
  - Palpitations [Unknown]
  - Emotional distress [Unknown]
  - Hyperhidrosis [Not Recovered/Not Resolved]
  - Abdominal discomfort [Unknown]
  - Nausea [Unknown]
  - Tremor [Unknown]
  - Sleep disorder [Not Recovered/Not Resolved]
  - Restlessness [Unknown]
  - Quality of life decreased [Unknown]

NARRATIVE: CASE EVENT DATE: 20140101
